FAERS Safety Report 4320307-6 (Version None)
Quarter: 2004Q1

REPORT INFORMATION
  Report Type: 
  Country: None (occurrence: None)
  Receive Date: 20040317
  Receipt Date: 20040308
  Transmission Date: 20041129
  Serious: Yes (Death, Congenital Anomaly)
  Sender: FDA-Public Use
  Company Number: 04-03-0343

PATIENT
  Age: 32 Week
  Sex: Male
  Weight: 1.1 kg

DRUGS (3)
  1. QVAR [Suspect]
     Dosage: TRANSPLACENTAL
  2. SALBUTAMOL ORAL AEROSOL [Suspect]
     Dosage: TRANSPLACENTAL
     Route: 064
  3. CANDESARTAN [Suspect]
     Dosage: TRANSPLACENTAL
     Route: 064

REACTIONS (16)
  - ANURIA [None]
  - BLADDER AGENESIS [None]
  - CONGENITAL FOOT MALFORMATION [None]
  - CRANIAL SUTURES WIDENING [None]
  - DRUG EXPOSURE DURING PREGNANCY [None]
  - FOETAL GROWTH RETARDATION [None]
  - FOETAL HEART RATE ABNORMAL [None]
  - HYPOSPADIAS [None]
  - JOINT CONTRACTURE [None]
  - KIDNEY MALFORMATION [None]
  - MULTIPLE CONGENITAL ABNORMALITIES [None]
  - NEONATAL HYPOTENSION [None]
  - PREMATURE BABY [None]
  - PULMONARY CONGESTION [None]
  - RENAL AGENESIS [None]
  - SKULL MALFORMATION [None]
